FAERS Safety Report 7865605-4 (Version None)
Quarter: 2011Q4

REPORT INFORMATION
  Report Type: 
  Country: None (occurrence: None)
  Receive Date: 20111028
  Receipt Date: 20110121
  Transmission Date: 20120403
  Serious: No
  Sender: FDA-Public Use
  Company Number: US-GLAXOSMITHKLINE-A0908050A

PATIENT
  Age: 80 Year
  Sex: Female

DRUGS (3)
  1. THYROID TAB [Concomitant]
     Route: 048
  2. ADVAIR DISKUS 100/50 [Suspect]
     Indication: ASTHMA
     Dosage: 1BLS TWICE PER DAY
     Route: 055
     Dates: start: 20100101
  3. LIPITOR [Concomitant]

REACTIONS (2)
  - RASH [None]
  - DERMATITIS PSORIASIFORM [None]
